FAERS Safety Report 11975548 (Version 3)
Quarter: 2016Q1

REPORT INFORMATION
  Report Type: Spontaneous
  Country: US (occurrence: US)
  Receive Date: 20160129
  Receipt Date: 20160314
  Transmission Date: 20160526
  Serious: Yes (Life-Threatening, Disabling, Other)
  Sender: FDA-Public Use
  Company Number: US-009507513-1601USA009554

PATIENT
  Age: 63 Year
  Sex: Male
  Weight: 76 kg

DRUGS (1)
  1. KEYTRUDA [Suspect]
     Active Substance: PEMBROLIZUMAB
     Indication: NEOPLASM MALIGNANT
     Dosage: 100 MG OVER 30 MINUTES, EVERY 3 WEEKS
     Route: 042
     Dates: start: 20151030, end: 20160106

REACTIONS (1)
  - Malignant neoplasm progression [Not Recovered/Not Resolved]

NARRATIVE: CASE EVENT DATE: 20160125
